FAERS Safety Report 18202151 (Version 9)
Quarter: 2024Q1

REPORT INFORMATION
  Report Type: Spontaneous
  Country: US (occurrence: US)
  Receive Date: 20200827
  Receipt Date: 20240312
  Transmission Date: 20240410
  Serious: No
  Sender: FDA-Public Use
  Company Number: US-PFIZER INC-2020332074

PATIENT
  Age: 62 Year
  Sex: Female

DRUGS (1)
  1. IBRANCE [Suspect]
     Active Substance: PALBOCICLIB
     Indication: Breast cancer female
     Dosage: TAKE 1 TABLET DAILY FOR 21 DAYS TAKEN WITH FOOD ON DAYS 1-21 EVERY 28 DAYS
     Route: 048
     Dates: start: 20200211

REACTIONS (2)
  - Alopecia [Unknown]
  - Fatigue [Unknown]
